FAERS Safety Report 4812673-X (Version None)
Quarter: 2005Q4

REPORT INFORMATION
  Report Type: 
  Country: None (occurrence: None)
  Receive Date: 20051028
  Receipt Date: 20041105
  Transmission Date: 20060501
  Serious: Yes (Other)
  Sender: FDA-Public Use
  Company Number: US-GLAXOSMITHKLINE-A0532841A

PATIENT
  Age: 47 Year
  Sex: Female
  Weight: 86.4 kg

DRUGS (3)
  1. ADVAIR DISKUS 100/50 [Suspect]
     Indication: ASTHMA
     Dosage: 1PUFF TWICE PER DAY
     Route: 055
  2. ALBUTEROL [Concomitant]
  3. DIOVAN [Concomitant]

REACTIONS (6)
  - COUGH [None]
  - DRUG INEFFECTIVE [None]
  - DYSPNOEA [None]
  - NASOPHARYNGITIS [None]
  - ORAL CANDIDIASIS [None]
  - PNEUMONIA [None]
